FAERS Safety Report 7472899-6 (Version None)
Quarter: 2011Q2

REPORT INFORMATION
  Report Type: 
  Country: None (occurrence: None)
  Receive Date: 20110503
  Receipt Date: 20110418
  Transmission Date: 20111010
  Serious: Yes (Hospitalization)
  Sender: FDA-Public Use
  Company Number: 031435

PATIENT
  Sex: Male
  Weight: 92.1 kg

DRUGS (5)
  1. CIMZIA [Suspect]
     Indication: CROHN'S DISEASE
     Dosage: (400 MG 1X/4 WEEKS SUBCUTANEOUS), (400 MG 1X/2 WEEKS SUBCUTANEOUS)
     Route: 058
     Dates: start: 20101231, end: 20110124
  2. CIMZIA [Suspect]
     Indication: CROHN'S DISEASE
     Dosage: (400 MG 1X/4 WEEKS SUBCUTANEOUS), (400 MG 1X/2 WEEKS SUBCUTANEOUS)
     Route: 058
     Dates: start: 20110207
  3. PREDNISONE [Concomitant]
  4. BENICAR [Concomitant]
  5. MERCAPTOPURINE [Concomitant]

REACTIONS (3)
  - ABSCESS [None]
  - CELLULITIS [None]
  - ABDOMINAL PAIN LOWER [None]
